FAERS Safety Report 9109493 (Version 1)
Quarter: 2013Q1

REPORT INFORMATION
  Report Type: Spontaneous
  Country: US (occurrence: US)
  Receive Date: 20130222
  Receipt Date: 20130222
  Transmission Date: 20140127
  Serious: Yes (Hospitalization)
  Sender: FDA-Public Use
  Company Number: US-MYLANLABS-2013S1003041

PATIENT
  Age: 50 Year
  Sex: Male

DRUGS (4)
  1. LEVETIRACETAM [Suspect]
     Indication: COMPLEX PARTIAL SEIZURES
     Route: 048
  2. GABAPENTIN [Concomitant]
     Dosage: 600MG AT BEDTIME
     Route: 048
  3. VALPROIC ACID [Concomitant]
     Route: 048
  4. ESOMEPRAZOLE [Concomitant]
     Route: 048

REACTIONS (2)
  - Acute psychosis [Recovered/Resolved]
  - Incorrect dose administered [Recovered/Resolved]
